FAERS Safety Report 8100632-3 (Version None)
Quarter: 2012Q1

REPORT INFORMATION
  Report Type: 
  Country: None (occurrence: None)
  Receive Date: 20120131
  Receipt Date: 20120124
  Transmission Date: 20120608
  Serious: Yes (Other)
  Sender: FDA-Public Use
  Company Number: US-PFIZER INC-2011272818

PATIENT
  Age: 18 Year
  Sex: Female

DRUGS (5)
  1. RAPAMUNE [Suspect]
     Indication: HEART TRANSPLANT
     Dosage: 12 MG, 3X/DAY
  2. PROGRAF [Suspect]
     Indication: HEART TRANSPLANT
  3. LISINOPRIL [Concomitant]
  4. CRESTOR [Concomitant]
  5. CARVEDILOL [Concomitant]

REACTIONS (1)
  - DRUG LEVEL BELOW THERAPEUTIC [None]
